FAERS Safety Report 9550369 (Version 2)
Quarter: 2014Q2

REPORT INFORMATION
  Report Type: Spontaneous
  Country: US (occurrence: US)
  Receive Date: 20130924
  Receipt Date: 20140402
  Transmission Date: 20141212
  Serious: No
  Sender: FDA-Public Use
  Company Number: US-SANOFI-AVENTIS-2013SA088141

PATIENT
  Sex: Male

DRUGS (5)
  1. AUBAGIO [Suspect]
     Indication: MULTIPLE SCLEROSIS
     Route: 065
  2. ZOLPIDEM [Concomitant]
  3. SIMVASTATIN [Concomitant]
  4. METOPROLOL [Concomitant]
  5. ASPIRIN [Concomitant]

REACTIONS (1)
  - Anaemia macrocytic [Unknown]
